FAERS Safety Report 21289975 (Version 1)
Quarter: 2022Q3

REPORT INFORMATION
  Report Type: Spontaneous
  Country: IN (occurrence: IN)
  Receive Date: 20220902
  Receipt Date: 20220902
  Transmission Date: 20221027
  Serious: Yes (Other)
  Sender: FDA-Public Use
  Company Number: IN-PFIZER INC-2020346608

PATIENT
  Age: 62 Year
  Sex: Male

DRUGS (9)
  1. SUTENT [Suspect]
     Active Substance: SUNITINIB MALATE
     Indication: Metastatic renal cell carcinoma
     Dosage: (DAILY (1-0-0) (2 WEEKS ON, ONE WEEK OFF))
     Route: 048
     Dates: start: 20200808, end: 20200822
  2. SUTENT [Suspect]
     Active Substance: SUNITINIB MALATE
     Dosage: (DAILY (1-0-0) (2 WEEKS ON, ONE WEEK OFF))
     Route: 048
     Dates: start: 20200829
  3. SUTENT [Suspect]
     Active Substance: SUNITINIB MALATE
     Dosage: 50 MG, 1X/DAY
     Route: 048
     Dates: start: 20200916
  4. SUTENT [Suspect]
     Active Substance: SUNITINIB MALATE
     Dosage: 37.5 MG, DAILY
     Dates: start: 20220204, end: 20220218
  5. SUTENT [Suspect]
     Active Substance: SUNITINIB MALATE
     Dosage: 37.5 MG, DAILY (12.5 MG, 3-0-0)
     Dates: start: 20220703, end: 20220716
  6. MEGESTROL [Suspect]
     Active Substance: MEGESTROL
     Dosage: UNK
  7. METOCLOPRAMIDE HYDROCHLORIDE [Concomitant]
     Active Substance: METOCLOPRAMIDE HYDROCHLORIDE
     Dosage: UNK UNK, 1X/DAY (1-0-0) 1/2HR BEFORE BREAKFAST
  8. PAN [Concomitant]
     Dosage: 40 MG, 1X/DAY (1/2 HR AF BREAKFAST)
  9. NEUPRO [Concomitant]
     Active Substance: ROTIGOTINE
     Dosage: 40 MG, 1X/DAY (1-0-0) 1/2HR B F

REACTIONS (26)
  - Platelet count decreased [Unknown]
  - Cholecystitis acute [Unknown]
  - Cholecystitis infective [Unknown]
  - Scrotal cellulitis [Unknown]
  - Intestinal obstruction [Unknown]
  - Diarrhoea [Unknown]
  - Nausea [Unknown]
  - Mucosal inflammation [Unknown]
  - Abdominal pain [Unknown]
  - Constipation [Unknown]
  - Palmar-plantar erythrodysaesthesia syndrome [Unknown]
  - Skin discolouration [Unknown]
  - Dry skin [Unknown]
  - Hair colour changes [Unknown]
  - Dyspnoea [Unknown]
  - Decreased appetite [Unknown]
  - Pallor [Unknown]
  - Food allergy [Unknown]
  - COVID-19 [Recovered/Resolved]
  - Blood urine present [Unknown]
  - Gastritis [Unknown]
  - Haemoglobin decreased [Unknown]
  - Neutrophil count decreased [Unknown]
  - White blood cell count decreased [Unknown]
  - Weight increased [Unknown]
  - Blood creatine increased [Unknown]

NARRATIVE: CASE EVENT DATE: 20200101
